FAERS Safety Report 7294034-X (Version None)
Quarter: 2011Q1

REPORT INFORMATION
  Report Type: 
  Country: None (occurrence: None)
  Receive Date: 20110215
  Receipt Date: 20110201
  Transmission Date: 20110831
  Serious: Yes (Hospitalization, Other)
  Sender: FDA-Public Use
  Company Number: US-CELGENEUS-163-21880-10082911

PATIENT
  Sex: Female
  Weight: 51 kg

DRUGS (17)
  1. GABAPENTIN [Concomitant]
     Route: 048
  2. VIDAZA [Suspect]
     Route: 051
     Dates: start: 20100629
  3. PREDNISONE TAB [Concomitant]
     Route: 048
  4. TYLENOL [Concomitant]
     Route: 048
  5. SODIUM PHOSPHATE [Concomitant]
     Dosage: 10 TO 20 M MOL
     Route: 051
     Dates: start: 20100718, end: 20100721
  6. NEXIUM [Concomitant]
     Route: 048
  7. DULCOLAX [Concomitant]
     Route: 048
  8. COLACE [Concomitant]
     Route: 048
  9. BACLOFEN [Concomitant]
     Route: 048
  10. COMBIVENT [Concomitant]
     Dosage: 4 PUFFS
     Route: 055
  11. MAGNESIUM SULFATE [Concomitant]
     Dosage: 2000 MG
     Route: 051
     Dates: start: 20100721, end: 20100721
  12. REVLIMID [Suspect]
     Route: 048
     Dates: start: 20100629
  13. ACYCLOVIR [Concomitant]
     Route: 048
  14. XANAX [Concomitant]
     Route: 048
  15. CALCIUM CHLORIDE [Suspect]
     Dosage: 1000 MG
     Route: 051
     Dates: start: 20100718, end: 20100718
  16. DIFLUCAN [Concomitant]
     Route: 048
  17. VITAMIN D [Concomitant]
     Route: 048

REACTIONS (5)
  - DIASTOLIC DYSFUNCTION [None]
  - FEBRILE NEUTROPENIA [None]
  - SEPSIS [None]
  - SINUS BRADYCARDIA [None]
  - HYPOTENSION [None]
